FAERS Safety Report 20690216 (Version 1)
Quarter: 2022Q2

REPORT INFORMATION
  Report Type: Spontaneous
  Country: US (occurrence: US)
  Receive Date: 20220408
  Receipt Date: 20220408
  Transmission Date: 20220721
  Serious: No
  Sender: FDA-Public Use
  Company Number: US-BAYER-2022A050665

PATIENT
  Age: 89 Year
  Sex: Female

DRUGS (3)
  1. MIRALAX [Suspect]
     Active Substance: POLYETHYLENE GLYCOL 3350
     Indication: Constipation
     Dosage: UNK UNK, QD (ONCE A DAY)
     Route: 048
  2. STATIN [ULINASTATIN] [Concomitant]
     Indication: Prophylaxis
     Route: 065
  3. THYROID [Concomitant]
     Active Substance: LEVOTHYROXINE\LIOTHYRONINE
     Route: 065

REACTIONS (2)
  - Flatulence [Not Recovered/Not Resolved]
  - Drug hypersensitivity [Not Recovered/Not Resolved]
